FAERS Safety Report 4673441-5 (Version None)
Quarter: 2005Q2

REPORT INFORMATION
  Report Type: 
  Country: None (occurrence: None)
  Receive Date: 20050525
  Receipt Date: 20041203
  Transmission Date: 20051028
  Serious: Yes (Other)
  Sender: FDA-Public Use
  Company Number: GB-GLAXOSMITHKLINE-B0359598A

PATIENT
  Sex: Female

DRUGS (1)
  1. SEROXAT [Suspect]
     Route: 065

REACTIONS (7)
  - COMPLETED SUICIDE [None]
  - DEPRESSION [None]
  - DRUG WITHDRAWAL SYNDROME [None]
  - ILL-DEFINED DISORDER [None]
  - INTENTIONAL SELF-INJURY [None]
  - MULTIPLE DRUG OVERDOSE [None]
  - STRESS [None]
